FAERS Safety Report 23736908 (Version 1)
Quarter: 2024Q2

REPORT INFORMATION
  Report Type: Spontaneous
  Country: CN (occurrence: CN)
  Receive Date: 20240412
  Receipt Date: 20240412
  Transmission Date: 20240716
  Serious: Yes (Death, Hospitalization)
  Sender: FDA-Public Use
  Company Number: CN-SUN PHARMACEUTICAL INDUSTRIES LTD-2024R1-440483

PATIENT
  Age: 32 Year
  Sex: Female

DRUGS (10)
  1. ACYCLOVIR [Suspect]
     Active Substance: ACYCLOVIR
     Indication: Viral myocarditis
     Dosage: UNK
     Route: 065
  2. ADEFOVIR [Suspect]
     Active Substance: ADEFOVIR
     Indication: Viral myocarditis
     Dosage: UNK
     Route: 065
  3. ENTECAVIR [Suspect]
     Active Substance: ENTECAVIR
     Indication: Viral myocarditis
     Dosage: UNK
     Route: 065
  4. TRIMETAZIDINE [Suspect]
     Active Substance: TRIMETAZIDINE
     Indication: Viral myocarditis
     Dosage: UNK
     Route: 065
  5. MOXIFLOXACIN [Suspect]
     Active Substance: MOXIFLOXACIN
     Indication: Viral myocarditis
     Dosage: UNK
     Route: 065
  6. METHYLPREDNISOLONE [Suspect]
     Active Substance: METHYLPREDNISOLONE
     Indication: Viral myocarditis
     Dosage: UNK
     Route: 065
  7. PANTOPRAZOLE [Suspect]
     Active Substance: PANTOPRAZOLE
     Indication: Viral myocarditis
     Dosage: UNK
     Route: 065
  8. GLUTATHIONE [Suspect]
     Active Substance: GLUTATHIONE
     Indication: Viral myocarditis
     Dosage: UNK
     Route: 065
  9. LEVOSIMENDAN [Suspect]
     Active Substance: LEVOSIMENDAN
     Indication: Viral myocarditis
     Dosage: UNK
     Route: 065
  10. UNSPECIFIED INGREDIENT [Suspect]
     Active Substance: UNSPECIFIED INGREDIENT
     Indication: Viral myocarditis
     Dosage: UNK
     Route: 065

REACTIONS (1)
  - Condition aggravated [Fatal]
